FAERS Safety Report 11282070 (Version 3)
Quarter: 2015Q3

REPORT INFORMATION
  Report Type: Spontaneous
  Country: US (occurrence: US)
  Receive Date: 20150719
  Receipt Date: 20150925
  Transmission Date: 20151125
  Serious: No
  Sender: FDA-Public Use
  Company Number: US-TEVA-577125USA

PATIENT
  Age: 59 Year
  Sex: Male

DRUGS (1)
  1. COPAXONE [Suspect]
     Active Substance: GLATIRAMER ACETATE
     Indication: MULTIPLE SCLEROSIS
     Route: 065
     Dates: start: 20110319

REACTIONS (2)
  - Fall [Unknown]
  - Tendon injury [Recovered/Resolved]

NARRATIVE: CASE EVENT DATE: 201507
